FAERS Safety Report 22291391 (Version 2)
Quarter: 2023Q2

REPORT INFORMATION
  Report Type: Spontaneous
  Country: CN (occurrence: CN)
  Receive Date: 20230506
  Receipt Date: 20230512
  Transmission Date: 20230722
  Serious: Yes (Other)
  Sender: FDA-Public Use
  Company Number: CN-002147023-NVSC2023CN099409

PATIENT
  Age: 54 Year
  Sex: Female
  Weight: 80 kg

DRUGS (3)
  1. EZETIMIBE [Suspect]
     Active Substance: EZETIMIBE
     Indication: Lipids abnormal
     Dosage: 10 MG, QD
     Route: 048
     Dates: start: 20230418, end: 20230420
  2. ROSUVASTATIN CALCIUM [Suspect]
     Active Substance: ROSUVASTATIN CALCIUM
     Indication: Lipids abnormal
     Dosage: 10 MG, QN
     Route: 048
     Dates: start: 20230412, end: 20230420
  3. ROSUVASTATIN CALCIUM [Suspect]
     Active Substance: ROSUVASTATIN CALCIUM
     Indication: Acute myocardial infarction

REACTIONS (1)
  - Hepatic function abnormal [Recovering/Resolving]

NARRATIVE: CASE EVENT DATE: 20230420
